FAERS Safety Report 18622183 (Version 1)
Quarter: 2020Q4

REPORT INFORMATION
  Report Type: Not Available
  Country: US (occurrence: US)
  Receive Date: 20201216
  Receipt Date: 20201216
  Transmission Date: 20210114
  Serious: No
  Sender: FDA-Public Use
  Company Number: US-NEUROCRINE BIOSCIENCES INC.-2020NBI04465

PATIENT
  Age: 57 Year
  Sex: Male

DRUGS (8)
  1. INGREZZA [Suspect]
     Active Substance: VALBENAZINE
     Indication: TARDIVE DYSKINESIA
     Route: 048
  2. ESCITALOPRAM [Concomitant]
     Active Substance: ESCITALOPRAM OXALATE
  3. DONEPEZIL. [Concomitant]
     Active Substance: DONEPEZIL
  4. OLANZAPINE. [Concomitant]
     Active Substance: OLANZAPINE
  5. VITAMINS NOS [Concomitant]
     Active Substance: VITAMINS
  6. CLARITINE [Concomitant]
     Active Substance: LORATADINE
  7. SIMVASTATIN. [Concomitant]
     Active Substance: SIMVASTATIN
  8. MELATONIN [Concomitant]
     Active Substance: MELATONIN

REACTIONS (1)
  - Somnolence [Unknown]
